FAERS Safety Report 5010026-5 (Version None)
Quarter: 2006Q2

REPORT INFORMATION
  Report Type: 
  Country: None (occurrence: None)
  Receive Date: 20060404
  Receipt Date: 20051130
  Transmission Date: 20061013
  Serious: No
  Sender: FDA-Public Use
  Company Number: US200511000522

PATIENT
  Age: 70 Year
  Sex: Male

DRUGS (9)
  1. CYMBALTA [Suspect]
     Indication: NEUROPATHY PERIPHERAL
     Dosage: 60 MG
     Dates: start: 20041001, end: 20051116
  2. COUMADIN [Concomitant]
  3. ZESTRIL [Concomitant]
  4. HYDROCHLOROTHIAZIDE [Concomitant]
  5. TOPROL-XL [Concomitant]
  6. CELEBREX [Concomitant]
  7. NEURONTIN [Concomitant]
  8. TOPAMAX [Concomitant]
  9. PREGABALIN [Concomitant]

REACTIONS (2)
  - HYPERTENSION [None]
  - PAIN IN EXTREMITY [None]
